FAERS Safety Report 22295218 (Version 1)
Quarter: 2023Q2

REPORT INFORMATION
  Report Type: Spontaneous
  Country: US (occurrence: US)
  Receive Date: 20230508
  Receipt Date: 20230508
  Transmission Date: 20230722
  Serious: No
  Sender: FDA-Public Use
  Company Number: US-TAKEDA-2023TUS045316

PATIENT
  Age: 21 Year
  Sex: Male
  Weight: 84 kg

DRUGS (1)
  1. VYVANSE [Suspect]
     Active Substance: LISDEXAMFETAMINE DIMESYLATE
     Indication: Attention deficit hyperactivity disorder
     Dosage: 40 MILLIGRAM
     Route: 065

REACTIONS (4)
  - Tension [Unknown]
  - Crying [Unknown]
  - Irritability [Unknown]
  - Anxiety [Unknown]
